FAERS Safety Report 15577931 (Version 2)
Quarter: 2019Q2

REPORT INFORMATION
  Report Type: Spontaneous
  Country: US (occurrence: US)
  Receive Date: 20181102
  Receipt Date: 20190617
  Transmission Date: 20190711
  Serious: No
  Sender: FDA-Public Use
  Company Number: US-PFIZER INC-2018440554

PATIENT
  Age: 66 Year
  Sex: Male

DRUGS (1)
  1. XELJANZ XR [Suspect]
     Active Substance: TOFACITINIB CITRATE
     Dosage: 11 MG, UNK (9 HOURS APART)

REACTIONS (3)
  - Off label use [Unknown]
  - Wrong product administered [Unknown]
  - Drug ineffective [Unknown]
